FAERS Safety Report 6535621-3 (Version None)
Quarter: 2010Q1

REPORT INFORMATION
  Report Type: 
  Country: None (occurrence: None)
  Receive Date: 20100113
  Receipt Date: 20100105
  Transmission Date: 20100710
  Serious: Yes (Other)
  Sender: FDA-Public Use
  Company Number: PHHY2010CY00563

PATIENT
  Age: 57 Year
  Sex: Female

DRUGS (2)
  1. GLEEVEC [Suspect]
     Indication: CHRONIC MYELOID LEUKAEMIA
     Dosage: 400 MG/DAY
  2. GLEEVEC [Suspect]
     Dosage: 400 MG/DAY

REACTIONS (5)
  - DIZZINESS [None]
  - FACE OEDEMA [None]
  - HAEMOGLOBIN DECREASED [None]
  - LEUKAEMIA RECURRENT [None]
  - MULTIPLE MYELOMA [None]
